FAERS Safety Report 4339884-4 (Version None)
Quarter: 2004Q2

REPORT INFORMATION
  Report Type: 
  Country: None (occurrence: None)
  Receive Date: 20040416
  Receipt Date: 20040405
  Transmission Date: 20050107
  Serious: Yes (Hospitalization)
  Sender: FDA-Public Use
  Company Number: JP-BRISTOL-MYERS SQUIBB COMPANY-12550661

PATIENT
  Age: 80 Year
  Sex: Male

DRUGS (3)
  1. MAXIPIME [Suspect]
     Indication: PNEUMONIA
     Dosage: 1-2 GRAMS
     Route: 042
     Dates: start: 20040216, end: 20040217
  2. CEFDITOREN PIVOXIL [Suspect]
     Indication: PNEUMONIA
     Route: 048
     Dates: start: 20040213, end: 20040216
  3. AMLODIPINE BESYLATE [Concomitant]

REACTIONS (3)
  - ALANINE AMINOTRANSFERASE INCREASED [None]
  - ASPARTATE AMINOTRANSFERASE INCREASED [None]
  - LIVER DISORDER [None]
